FAERS Safety Report 7380831-9 (Version None)
Quarter: 2011Q1

REPORT INFORMATION
  Report Type: 
  Country: None (occurrence: None)
  Receive Date: 20110321
  Receipt Date: 20110314
  Transmission Date: 20110831
  Serious: Yes (Other)
  Sender: FDA-Public Use
  Company Number: 2011MA002409

PATIENT
  Sex: Female

DRUGS (1)
  1. METOCLOPRAMIDE [Suspect]
     Dates: start: 20040201, end: 20060801

REACTIONS (8)
  - ECONOMIC PROBLEM [None]
  - EXTRAPYRAMIDAL DISORDER [None]
  - RESTLESS LEGS SYNDROME [None]
  - TREMOR [None]
  - EMOTIONAL DISORDER [None]
  - PARKINSONISM [None]
  - TARDIVE DYSKINESIA [None]
  - PARKINSON'S DISEASE [None]
